FAERS Safety Report 25422725 (Version 2)
Quarter: 2025Q3

REPORT INFORMATION
  Report Type: Spontaneous
  Country: EU (occurrence: EU)
  Receive Date: 20250611
  Receipt Date: 20250802
  Transmission Date: 20251020
  Serious: Yes (Other)
  Sender: ALEXION PHARMACEUTICALS
  Company Number: EU-AstraZeneca-CH-00865395A

PATIENT
  Age: 2 Year
  Sex: Female

DRUGS (1)
  1. SOLIRIS [Suspect]
     Active Substance: ECULIZUMAB
     Indication: Atypical haemolytic uraemic syndrome

REACTIONS (7)
  - Polyuria [Unknown]
  - Haptoglobin decreased [Unknown]
  - ADAMTS13 activity decreased [Unknown]
  - Hypertension [Unknown]
  - Proteinuria [Unknown]
  - Haematuria [Unknown]
  - Protein urine present [Unknown]
